FAERS Safety Report 11324927 (Version 1)
Quarter: 2015Q3

REPORT INFORMATION
  Report Type: Spontaneous
  Country: CH (occurrence: CH)
  Receive Date: 20150730
  Receipt Date: 20150730
  Transmission Date: 20151125
  Serious: Yes (Other)
  Sender: FDA-Public Use
  Company Number: CH-BAXTER-2015BAX040243

PATIENT
  Age: 46 Year
  Sex: Female

DRUGS (10)
  1. VINCRISTINE [Suspect]
     Active Substance: VINCRISTINE
     Indication: IMMUNOBLASTIC LYMPHOMA
     Dosage: 3 ROUNDS
     Route: 065
  2. CISPLATIN. [Suspect]
     Active Substance: CISPLATIN
     Indication: IMMUNOBLASTIC LYMPHOMA
     Dosage: 3 ROUNDS
     Route: 065
  3. DEXAMETHASONE. [Suspect]
     Active Substance: DEXAMETHASONE
     Indication: IMMUNOBLASTIC LYMPHOMA
     Route: 065
  4. ENDOXAN 1 G [Suspect]
     Active Substance: CYCLOPHOSPHAMIDE
     Indication: IMMUNOBLASTIC LYMPHOMA
     Dosage: 3 ROUNDS
     Route: 065
  5. DOXORUBICIN [Suspect]
     Active Substance: DOXORUBICIN
     Indication: IMMUNOBLASTIC LYMPHOMA
     Dosage: 3 ROUNDS
     Route: 065
  6. CYTARABINE. [Suspect]
     Active Substance: CYTARABINE
     Indication: IMMUNOBLASTIC LYMPHOMA
     Dosage: 3 ROUNDS
     Route: 065
  7. PREDNISOLONE. [Suspect]
     Active Substance: PREDNISOLONE
     Indication: IMMUNOBLASTIC LYMPHOMA
     Dosage: 3 ROUNDS
     Route: 065
  8. METHOTREXATE [Suspect]
     Active Substance: METHOTREXATE
     Indication: IMMUNOBLASTIC LYMPHOMA
     Dosage: 3 ROUNDS
     Route: 065
  9. HOLOXAN 2 G [Suspect]
     Active Substance: IFOSFAMIDE
     Indication: IMMUNOBLASTIC LYMPHOMA
     Dosage: 3 ROUNDS
     Route: 065
  10. ETOPOSIDE. [Suspect]
     Active Substance: ETOPOSIDE
     Indication: IMMUNOBLASTIC LYMPHOMA
     Dosage: 3 ROUNDS
     Route: 065

REACTIONS (2)
  - Immunoblastic lymphoma [Unknown]
  - Non-Hodgkin^s lymphoma recurrent [Unknown]
